FAERS Safety Report 12783548 (Version 1)
Quarter: 2016Q3

REPORT INFORMATION
  Report Type: Spontaneous
  Country: AR (occurrence: AR)
  Receive Date: 20160927
  Receipt Date: 20160927
  Transmission Date: 20161109
  Serious: Yes (Other)
  Sender: FDA-Public Use
  Company Number: AR-AMGEN-ARGSP2016131148

PATIENT
  Age: 38 Year
  Sex: Female
  Weight: 64 kg

DRUGS (1)
  1. ENBREL [Suspect]
     Active Substance: ETANERCEPT
     Indication: RHEUMATOID ARTHRITIS
     Dosage: 25 MG, EVERY 15-20 DAYS
     Route: 065
     Dates: end: 20160301

REACTIONS (3)
  - Inappropriate schedule of drug administration [Recovered/Resolved]
  - Pain [Recovering/Resolving]
  - High risk pregnancy [Recovered/Resolved with Sequelae]
